FAERS Safety Report 16719974 (Version 8)
Quarter: 2024Q3

REPORT INFORMATION
  Report Type: Report from Study
  Country: US (occurrence: US)
  Receive Date: 20190820
  Receipt Date: 20240807
  Transmission Date: 20241016
  Serious: Yes (Hospitalization)
  Sender: MYLAN
  Company Number: US-PFIZER INC-2019355342

PATIENT
  Sex: Female
  Weight: 70.31 kg

DRUGS (1)
  1. DILANTIN [Suspect]
     Active Substance: PHENYTOIN
     Indication: Product used for unknown indication
     Dosage: 100 MILLIGRAM, TID (3X/DAY)
     Route: 048
     Dates: start: 1985

REACTIONS (5)
  - Illness [Unknown]
  - Impaired driving ability [Unknown]
  - Decreased activity [Unknown]
  - Mental disorder [Unknown]
  - Intentional product misuse [Unknown]
